FAERS Safety Report 5429883-3 (Version None)
Quarter: 2007Q3

REPORT INFORMATION
  Report Type: 
  Country: None (occurrence: None)
  Receive Date: 20070731
  Receipt Date: 20070521
  Transmission Date: 20080115
  Serious: No
  Sender: FDA-Public Use
  Company Number: US200704002687

PATIENT
  Age: 44 Year
  Sex: Male
  Weight: 131.5 kg

DRUGS (4)
  1. BYETTA [Suspect]
     Indication: TYPE 2 DIABETES MELLITUS
     Dosage: 5 UG, 2/D,    10 UG, 2/D
     Dates: start: 20070211, end: 20070310
  2. BYETTA [Suspect]
     Indication: TYPE 2 DIABETES MELLITUS
     Dosage: 5 UG, 2/D,    10 UG, 2/D
     Dates: start: 20070311
  3. METFORMIN HCL [Concomitant]
  4. ACTOS [Concomitant]

REACTIONS (12)
  - BLOOD GLUCOSE INCREASED [None]
  - BRONCHITIS [None]
  - COUGH [None]
  - DIARRHOEA [None]
  - FEELING COLD [None]
  - MALAISE [None]
  - NAUSEA [None]
  - NIGHT SWEATS [None]
  - POLLAKIURIA [None]
  - VIRAL INFECTION [None]
  - VISION BLURRED [None]
  - WEIGHT DECREASED [None]
